FAERS Safety Report 7119364-3 (Version None)
Quarter: 2010Q4

REPORT INFORMATION
  Report Type: 
  Country: None (occurrence: None)
  Receive Date: 20101123
  Receipt Date: 20101118
  Transmission Date: 20110411
  Serious: Yes (Hospitalization, Other)
  Sender: FDA-Public Use
  Company Number: IT-US-EMD SERONO, INC.-7028092

PATIENT
  Age: 27 Year
  Sex: Female

DRUGS (4)
  1. LUVERIS [Suspect]
     Indication: PRODUCT USED FOR UNKNOWN INDICATION
  2. OVITRELLE [Suspect]
     Indication: PRODUCT USED FOR UNKNOWN INDICATION
  3. LEUPROLIDE ACETATE [Suspect]
     Indication: OVARIAN HYPERSTIMULATION SYNDROME
  4. PUREGON [Suspect]
     Indication: PRODUCT USED FOR UNKNOWN INDICATION

REACTIONS (2)
  - MULTIPLE PREGNANCY [None]
  - OVARIAN HYPERSTIMULATION SYNDROME [None]
